FAERS Safety Report 5057884-6 (Version None)
Quarter: 2006Q3

REPORT INFORMATION
  Report Type: 
  Country: None (occurrence: None)
  Receive Date: 20060721
  Receipt Date: 20060322
  Transmission Date: 20061208
  Serious: No
  Sender: FDA-Public Use
  Company Number: US-GLAXOSMITHKLINE-A0599003A

PATIENT
  Sex: Female

DRUGS (5)
  1. AVANDIA [Suspect]
     Route: 048
     Dates: start: 20051015, end: 20051015
  2. ATACAND [Concomitant]
  3. CARAFATE [Concomitant]
  4. PREVACID [Concomitant]
  5. CARAFATE [Concomitant]

REACTIONS (2)
  - GASTRITIS [None]
  - GASTROINTESTINAL PAIN [None]
